APPROVED DRUG PRODUCT: TALZENNA
Active Ingredient: TALAZOPARIB TOSYLATE
Strength: EQ 0.35MG BASE
Dosage Form/Route: CAPSULE;ORAL
Application: N217439 | Product #003
Applicant: PFIZER INC
Approved: Mar 7, 2024 | RLD: Yes | RS: No | Type: RX

PATENTS:
Patent 10780088 | Expires: Jul 27, 2029
Patent 9820985 | Expires: Jul 27, 2029
Patent 10189837 | Expires: Oct 20, 2031
Patent 8420650 | Expires: Jul 27, 2029
Patent 8012976 | Expires: Jul 27, 2029
Patent 8735392 | Expires: Oct 20, 2031